FAERS Safety Report 6473170-1 (Version None)
Quarter: 2009Q4

REPORT INFORMATION
  Report Type: 
  Country: None (occurrence: None)
  Receive Date: 20091204
  Receipt Date: 20081009
  Transmission Date: 20100525
  Serious: Yes (Hospitalization, Other)
  Sender: FDA-Public Use
  Company Number: US-ELI_LILLY_AND_COMPANY-US200808005933

PATIENT
  Sex: Male
  Weight: 82.54 kg

DRUGS (15)
  1. BYETTA [Suspect]
     Indication: TYPE 2 DIABETES MELLITUS
     Dosage: 5 UG, 2/D
     Route: 058
     Dates: start: 20070626, end: 20080602
  2. BYETTA [Suspect]
     Dosage: 10 UG, 2/D
     Route: 058
     Dates: start: 20080603, end: 20080810
  3. AMARYL [Concomitant]
     Dosage: 4 MG, 2/D
     Route: 065
     Dates: start: 20080828
  4. METFORMIN HCL [Concomitant]
     Dosage: 1000 MG, DAILY (1/D)
     Route: 065
     Dates: start: 20080808
  5. AVANDIA [Concomitant]
     Dosage: 4 MG, 2/D
     Route: 065
     Dates: start: 20080603
  6. VYTORIN [Concomitant]
     Indication: DYSLIPIDAEMIA
     Dosage: UNK, DAILY (1/D)
     Route: 048
     Dates: start: 20080603
  7. LOTREL [Concomitant]
     Dosage: UNK, EACH EVENING
     Route: 048
     Dates: start: 20070326
  8. ASPIRIN [Concomitant]
     Dosage: 81 MG, DAILY (1/D)
     Route: 065
     Dates: start: 20061004
  9. MULTI-VITAMIN [Concomitant]
     Dosage: UNK, DAILY (1/D)
     Route: 065
     Dates: start: 20061004
  10. ZOCOR [Concomitant]
     Dosage: 20 MG, UNKNOWN
     Route: 065
  11. LISINOPRIL [Concomitant]
     Dosage: 10 MG, UNKNOWN
     Route: 065
  12. HYDROCHLOROTHIAZIDE [Concomitant]
     Dosage: 12.5 MG, UNKNOWN
     Route: 065
  13. ANTI-DIABETICS [Concomitant]
     Dosage: 100 MG, UNKNOWN
     Route: 065
  14. PREVACID [Concomitant]
     Dosage: 30 MG, DAILY (1/D)
     Route: 065
  15. GLUCOTROL [Concomitant]
     Dosage: 5 MG, 2/D
     Route: 065

REACTIONS (8)
  - ATELECTASIS [None]
  - BLOOD GLUCOSE ABNORMAL [None]
  - BLOOD GLUCOSE INCREASED [None]
  - GASTRIC ILEUS [None]
  - PANCREATITIS [None]
  - RENAL CYST [None]
  - RENAL FAILURE ACUTE [None]
  - WEIGHT DECREASED [None]
